FAERS Safety Report 22372917 (Version 2)
Quarter: 2023Q2

REPORT INFORMATION
  Report Type: Spontaneous
  Country: US (occurrence: US)
  Receive Date: 20230526
  Receipt Date: 20230613
  Transmission Date: 20230721
  Serious: Yes (Death)
  Sender: FDA-Public Use
  Company Number: US-PFIZER INC-202200222776

PATIENT
  Age: 76 Year
  Sex: Male
  Weight: 68.027 kg

DRUGS (14)
  1. VYNDAMAX [Suspect]
     Active Substance: TAFAMIDIS
     Indication: Cardiac amyloidosis
     Dosage: 61 MG, 1X/DAY
     Dates: start: 202202, end: 202202
  2. VYNDAMAX [Suspect]
     Active Substance: TAFAMIDIS
     Dosage: 61 MG
  3. VYNDAMAX [Suspect]
     Active Substance: TAFAMIDIS
     Dosage: 61 MG, 1X/DAY
  4. LASIX [Concomitant]
     Active Substance: FUROSEMIDE
     Dosage: 20 MG, 1X/DAY DAILY
     Dates: start: 202110
  5. XARELTO [Concomitant]
     Active Substance: RIVAROXABAN
     Dosage: 20 MG, 1X/DAY
     Dates: start: 202110
  6. LEVOTHYROXINE SODIUM [Concomitant]
     Active Substance: LEVOTHYROXINE SODIUM
     Dosage: 0.075 MG
  7. EFFEXOR [Concomitant]
     Active Substance: VENLAFAXINE HYDROCHLORIDE
     Dosage: 150 MG, 1X/DAY
  8. LAMICTAL [Concomitant]
     Active Substance: LAMOTRIGINE
     Dosage: 100 MG, 2X/DAY
  9. PREGABALIN;PF-00489791 [Concomitant]
     Dosage: 300 MG, 2X/DAY
  10. ROSUVASTATIN [Concomitant]
     Active Substance: ROSUVASTATIN
     Dosage: 10 MG, 1X/DAY
  11. PANTOPRAZOLE [Concomitant]
     Active Substance: PANTOPRAZOLE
     Dosage: 40 MG, 1X/DAY
     Dates: start: 202110
  12. VANCOMYCIN HYDROCHLORIDE [Concomitant]
     Active Substance: VANCOMYCIN HYDROCHLORIDE
     Dosage: 250 MG, 4X/DAY
  13. BUPRENORPHINE [Concomitant]
     Active Substance: BUPRENORPHINE
     Dosage: 8 MG, 1X/DAY
  14. ALPRAZOLAM [Concomitant]
     Active Substance: ALPRAZOLAM
     Dosage: 0.5 MG, 1X/DAY

REACTIONS (2)
  - Fall [Fatal]
  - Hip fracture [Fatal]
